FAERS Safety Report 9508383 (Version 1)
Quarter: 2013Q1

REPORT INFORMATION
  Report Type: Spontaneous
  Country: US (occurrence: None)
  Receive Date: 20130305
  Receipt Date: 20130305
  Transmission Date: 20140127
  Serious: Yes (Other)
  Sender: FDA-Public Use
  Company Number: 163-21880-12051645

PATIENT
  Age: 65 Year
  Sex: Female
  Weight: 56.7 kg

DRUGS (12)
  1. REVLIMID (LENALIDOMIDE) (25 MILLIGRAM, CAPSULES) [Suspect]
     Indication: PLASMA CELL MYELOMA
     Dosage: CAPSULE, 25 MG, 21 IN 21 D, PO
     Dates: start: 20120101, end: 201208
  2. ARMOUR THYROID [Concomitant]
  3. ASPIRIN (ACETYLSALICYLIC ACID) [Concomitant]
  4. VITAMIN C [Concomitant]
  5. CLONAZEPAM [Concomitant]
  6. VITAMIN D (ERGOCALCIFEROL) [Concomitant]
  7. VITAMIN B12 (CYANOCOBALAMIN) [Concomitant]
  8. MAGNESIUM [Concomitant]
  9. TEMAZEPAM [Concomitant]
  10. PROBIOTIC (BIFIDOBACTERIUM LACTIS) [Concomitant]
  11. TYLENOL (PARACETAMOL) [Concomitant]
  12. ZOMETA (ZOLEDRONIC ACID) [Concomitant]

REACTIONS (4)
  - White blood cell count decreased [None]
  - Sleep disorder [None]
  - Haemoglobin decreased [None]
  - Abdominal pain [None]
